FAERS Safety Report 8594724-2 (Version None)
Quarter: 2012Q3

REPORT INFORMATION
  Report Type: 
  Country: None (occurrence: None)
  Receive Date: 20120815
  Receipt Date: 20120807
  Transmission Date: 20120928
  Serious: Yes (Hospitalization)
  Sender: FDA-Public Use
  Company Number: US-BAYER-2012-081200

PATIENT
  Age: 24 Year
  Sex: Female
  Weight: 77 kg

DRUGS (18)
  1. FLOVENT [Concomitant]
     Dosage: 110 MCG TWICE DAILY
     Dates: start: 20031221
  2. SYNTHROID [Concomitant]
     Dosage: 75 MCG DAILY
     Route: 048
     Dates: start: 20031221
  3. LEXAPRO [Concomitant]
     Dosage: UNK
     Dates: start: 20031221
  4. VIOXX [Concomitant]
     Dosage: UNK
     Dates: start: 20031221
  5. ALBUTEROL [Concomitant]
     Dosage: UNK UNK, PRN
     Dates: start: 20031221
  6. KETOPROFEN [Concomitant]
     Dosage: UNK
     Dates: start: 20031209
  7. ANCEF [Concomitant]
  8. MULTI-VITAMIN [Concomitant]
     Dosage: DAILY
     Route: 048
     Dates: start: 20031105
  9. CIPROFLOXACIN [Concomitant]
     Dosage: 500 MG, BID
     Dates: start: 20031105
  10. ORUDIS [Concomitant]
     Dosage: UNK
     Dates: start: 20031209
  11. SINGULAIR [Concomitant]
     Dosage: 10 MG, DAILY
     Route: 048
     Dates: start: 20031221
  12. AZITHROMYCIN [Concomitant]
  13. YASMIN [Suspect]
  14. LORTAB [Concomitant]
     Dosage: UNK
     Dates: start: 20031209
  15. MS CONTIN [Concomitant]
     Dosage: UNK
     Dates: start: 20031201
  16. ACETAMINOPHEN AND HYDROCODONE BITARTRATE [Concomitant]
     Dosage: UNK
     Dates: start: 20031201
  17. PRILOSEC [Concomitant]
     Dosage: 20 MG, UNK
     Dates: start: 20031105
  18. ZYRTEC [Concomitant]
     Dosage: 10 MG, DAILY AS NEEDED
     Route: 048
     Dates: start: 20031105

REACTIONS (1)
  - PULMONARY EMBOLISM [None]
